FAERS Safety Report 16335846 (Version 1)
Quarter: 2019Q2

REPORT INFORMATION
  Report Type: Spontaneous
  Country: MX (occurrence: MX)
  Receive Date: 20190521
  Receipt Date: 20190521
  Transmission Date: 20190711
  Serious: Yes (Hospitalization, Other)
  Sender: FDA-Public Use
  Company Number: MX-SA-2019SA131925

PATIENT
  Age: 56 Year
  Sex: Female

DRUGS (2)
  1. INSULIN GLARGINE [Suspect]
     Active Substance: INSULIN GLARGINE
     Indication: TYPE 2 DIABETES MELLITUS
     Dosage: 15 U, HS
     Route: 058
  2. METFORMIN HYDROCHLORIDE. [Suspect]
     Active Substance: METFORMIN HYDROCHLORIDE
     Indication: TYPE 2 DIABETES MELLITUS
     Dosage: 850 MG, BID
     Route: 048

REACTIONS (22)
  - Pulmonary tuberculosis [Recovered/Resolved]
  - Pyrexia [Recovered/Resolved]
  - Haematuria [Recovered/Resolved]
  - Dyspnoea [Recovered/Resolved]
  - Tachypnoea [Recovered/Resolved]
  - Crepitations [Recovered/Resolved]
  - Leukocyturia [Recovered/Resolved]
  - Glycosylated haemoglobin increased [Unknown]
  - Pulmonary mass [Recovered/Resolved]
  - Loss of personal independence in daily activities [Recovered/Resolved]
  - Mucormycosis [Recovered/Resolved]
  - Weight decreased [Recovered/Resolved]
  - Chest expansion decreased [Recovered/Resolved]
  - Diabetes mellitus inadequate control [Unknown]
  - Cough [Recovered/Resolved]
  - Lung infiltration [Recovered/Resolved]
  - Proteinuria [Recovered/Resolved]
  - Chest pain [Recovered/Resolved]
  - Hyperhidrosis [Recovered/Resolved]
  - Haemoptysis [Recovered/Resolved]
  - Dehydration [Recovered/Resolved]
  - Breath sounds abnormal [Recovered/Resolved]
